FAERS Safety Report 13952557 (Version 1)
Quarter: 2017Q3

REPORT INFORMATION
  Report Type: Spontaneous
  Country: US (occurrence: US)
  Receive Date: 20170911
  Receipt Date: 20170911
  Transmission Date: 20171128
  Serious: No
  Sender: FDA-Public Use
  Company Number: US-TEVA-740174USA

PATIENT
  Sex: Male

DRUGS (1)
  1. FENTANYL. [Suspect]
     Active Substance: FENTANYL
     Route: 062

REACTIONS (11)
  - Intentional product misuse [Unknown]
  - Application site burn [Unknown]
  - Product physical issue [Unknown]
  - Product physical consistency issue [Unknown]
  - Application site urticaria [Unknown]
  - Application site irritation [Unknown]
  - Product adhesion issue [Unknown]
  - Application site erythema [Unknown]
  - Skin injury [Unknown]
  - Application site pruritus [Unknown]
  - Burning sensation [Unknown]
